FAERS Safety Report 24076379 (Version 5)
Quarter: 2024Q4

REPORT INFORMATION
  Report Type: Spontaneous
  Country: CA (occurrence: CA)
  Receive Date: 20240711
  Receipt Date: 20241028
  Transmission Date: 20250115
  Serious: Yes (Other)
  Sender: NOVARTIS
  Company Number: CA-SANDOZ-SDZ2024CA063752

PATIENT
  Age: 62 Year
  Sex: Female

DRUGS (2)
  1. CARBAMAZEPINE [Suspect]
     Active Substance: CARBAMAZEPINE
     Indication: Product used for unknown indication
     Dosage: UNK
     Route: 058
  2. SATRALIZUMAB [Suspect]
     Active Substance: SATRALIZUMAB
     Indication: Neuromyelitis optica spectrum disorder
     Dosage: 120 MG, Q4W (1 EVERY 4 WEEKS)
     Route: 058

REACTIONS (6)
  - Bladder disorder [Unknown]
  - Ill-defined disorder [Unknown]
  - Insomnia [Unknown]
  - Uterine disorder [Unknown]
  - Fatigue [Unknown]
  - Headache [Recovered/Resolved]
